FAERS Safety Report 6486908-4 (Version None)
Quarter: 2009Q4

REPORT INFORMATION
  Report Type: 
  Country: None (occurrence: None)
  Receive Date: 20091123
  Receipt Date: 20090831
  Transmission Date: 20100525
  Serious: No
  Sender: FDA-Public Use
  Company Number: 8051911

PATIENT
  Age: 40 Year
  Sex: Female

DRUGS (3)
  1. CIMZIA [Suspect]
     Dosage: 400 MG /M SC
     Route: 058
     Dates: start: 20090327
  2. XANAX [Concomitant]
  3. PRISTIQ [Concomitant]

REACTIONS (2)
  - INSOMNIA [None]
  - STRESS [None]
